FAERS Safety Report 7621021-1 (Version None)
Quarter: 2011Q3

REPORT INFORMATION
  Report Type: 
  Country: None (occurrence: None)
  Receive Date: 20110719
  Receipt Date: 20110126
  Transmission Date: 20111222
  Serious: No
  Sender: FDA-Public Use
  Company Number: US-KINGPHARMUSA00001-K201100104

PATIENT
  Sex: Female
  Weight: 65.76 kg

DRUGS (5)
  1. LEVOXYL [Suspect]
     Indication: THYROIDECTOMY
     Dosage: 100 MCG, QD
     Route: 048
  2. LEVOXYL [Suspect]
     Dosage: 88 MCG QD
     Route: 048
  3. TRIAMTERENE [Concomitant]
     Indication: FLUID RETENTION
     Dosage: UNK
  4. LEVOXYL [Suspect]
     Dosage: 75 MCG, QD EXCEPT ON SUNDAY AND WEDNESDAY TOOK BID
     Route: 048
  5. LIPITOR [Concomitant]
     Indication: TYPE IIA HYPERLIPIDAEMIA
     Dosage: UNK

REACTIONS (4)
  - BLOOD THYROID STIMULATING HORMONE ABNORMAL [None]
  - BLOOD THYROID STIMULATING HORMONE DECREASED [None]
  - THYROXINE ABNORMAL [None]
  - WEIGHT INCREASED [None]
